FAERS Safety Report 9665489 (Version 1)
Quarter: 2013Q4

REPORT INFORMATION
  Report Type: Spontaneous
  Country: US (occurrence: US)
  Receive Date: 20131104
  Receipt Date: 20131104
  Transmission Date: 20140711
  Serious: No
  Sender: FDA-Public Use
  Company Number: US-PFIZER INC-2013313264

PATIENT
  Age: 48 Year
  Sex: Female
  Weight: 45.35 kg

DRUGS (2)
  1. PRISTIQ [Suspect]
     Indication: ANXIETY
     Dosage: 50 MG, 1X/DAY
     Dates: start: 2010
  2. PRISTIQ [Suspect]
     Indication: DEPRESSION

REACTIONS (1)
  - Drug ineffective [Unknown]
